FAERS Safety Report 21792296 (Version 1)
Quarter: 2022Q4

REPORT INFORMATION
  Report Type: Spontaneous
  Country: GB (occurrence: GB)
  Receive Date: 20221229
  Receipt Date: 20221229
  Transmission Date: 20230112
  Serious: Yes (Hospitalization, Disabling, Other)
  Sender: FDA-Public Use
  Company Number: None

PATIENT
  Age: 31 Year

DRUGS (7)
  1. LANTUS [Suspect]
     Active Substance: INSULIN GLARGINE
     Dosage: 25 U, HS, EVERY NIGHT; 100UNITS/ML; 10ML VIALS
  2. INSULIN ASPART [Suspect]
     Active Substance: INSULIN ASPART
     Dosage: 1-10 UNITS PER MEAL/ SNACK - CARB COUNTS; 100UNITS/ML; 10ML VIALS
  3. SERTRALINE [Concomitant]
     Active Substance: SERTRALINE HYDROCHLORIDE
     Dosage: 100 MG, QD
  4. DESOGESTREL [Concomitant]
     Active Substance: DESOGESTREL
     Dosage: 75 MG, QD
  5. TRANEXAMIC ACID [Concomitant]
     Active Substance: TRANEXAMIC ACID
     Dosage: 1 G, FROM START OF MENSTRUATION FOR UP TO 4 DAYS
  6. VITAMIN D3 [Concomitant]
     Active Substance: CHOLECALCIFEROL
     Dosage: 20000 MG, QD, HAS AT THE START OF THE MONTH.
  7. FERROUS SULFATE [Concomitant]
     Active Substance: FERROUS SULFATE
     Dosage: 200 MG, QD, TWO TO THREE TIMES

REACTIONS (1)
  - Diabetic ketoacidosis [Recovered/Resolved]
